FAERS Safety Report 7764295 (Version 3)
Quarter: 2014Q3

REPORT INFORMATION
  Report Type: Spontaneous
  Country: US (occurrence: US)
  Receive Date: 20110118
  Receipt Date: 20140918
  Transmission Date: 20150326
  Serious: Yes (Hospitalization, Other)
  Sender: FDA-Public Use
  Company Number: US-ASTRAZENECA-2011SE01538

PATIENT
  Age: 44 Year
  Sex: Female

DRUGS (1)
  1. ATACAND [Suspect]
     Active Substance: CANDESARTAN CILEXETIL
     Route: 048

REACTIONS (7)
  - Cardiac disorder [Unknown]
  - Road traffic accident [Unknown]
  - Myocardial infarction [Unknown]
  - Heart injury [Unknown]
  - Traumatic lung injury [Unknown]
  - Skeletal injury [Unknown]
  - Brain injury [Unknown]

NARRATIVE: CASE EVENT DATE: 20100812
